FAERS Safety Report 7492055-5 (Version None)
Quarter: 2011Q2

REPORT INFORMATION
  Report Type: 
  Country: None (occurrence: None)
  Receive Date: 20110519
  Receipt Date: 20110512
  Transmission Date: 20111010
  Serious: Yes (Other)
  Sender: FDA-Public Use
  Company Number: US-CEPHALON-2011002340

PATIENT
  Sex: Female
  Weight: 82 kg

DRUGS (6)
  1. SIMVASTATIN [Concomitant]
     Dates: start: 20070101
  2. CYMBALTA [Concomitant]
     Dates: start: 20100101
  3. NUVIGIL [Suspect]
     Indication: FATIGUE
     Route: 048
     Dates: start: 20110312, end: 20110412
  4. NUVIGIL [Suspect]
     Route: 048
     Dates: start: 20110412
  5. BYSTOLIC [Concomitant]
     Dates: start: 20090101
  6. NUVIGIL [Suspect]
     Route: 048

REACTIONS (6)
  - ENERGY INCREASED [None]
  - AGGRESSION [None]
  - ANXIETY [None]
  - AMENORRHOEA [None]
  - DRUG INEFFECTIVE [None]
  - FATIGUE [None]
